FAERS Safety Report 5118911-0 (Version None)
Quarter: 2006Q3

REPORT INFORMATION
  Report Type: 
  Country: None (occurrence: None)
  Receive Date: 20060927
  Receipt Date: 20060919
  Transmission Date: 20061208
  Serious: Yes (Life-Threatening, Hospitalization, Other)
  Sender: FDA-Public Use
  Company Number: 430004N06JPN

PATIENT
  Age: 59 Year
  Sex: Male

DRUGS (16)
  1. NOVANTRONE [Suspect]
     Dosage: INTRAVENOUS
     Route: 042
     Dates: start: 20060127, end: 20060202
  2. GEMTUZUMAB OZOGAMICIN [Suspect]
     Dosage: 9 MG/M2, 1 IN 1 DAYS, INTRAVENOUS
     Route: 042
     Dates: start: 20060113, end: 20060113
  3. ENOCITABINE [Suspect]
     Dates: start: 20060127, end: 20060202
  4. ETOPOSIDE [Suspect]
     Dosage: INTRAVENOUS
     Route: 042
     Dates: start: 20060127, end: 20060202
  5. LEVOFLOXACIN [Concomitant]
  6. ITRACONAZOLE [Concomitant]
  7. ALLOPURINOL [Concomitant]
  8. FAMOTIDINE [Concomitant]
  9. SUCRALFATE [Concomitant]
  10. STREPTOCOCCUS FAECALIS [Concomitant]
  11. URSODEOXYCHOLIC ACID [Concomitant]
  12. SODIUM BICARBONATE [Concomitant]
  13. RAMOSETRON HYDROCHLORIDE [Concomitant]
  14. HEPARIN SODIUM [Concomitant]
  15. FUROSEMIDE [Concomitant]
  16. METOCLOPRAMIDE [Concomitant]

REACTIONS (5)
  - ANAEMIA [None]
  - CATHETER RELATED INFECTION [None]
  - SEPSIS [None]
  - VENOOCCLUSIVE LIVER DISEASE [None]
  - WHITE BLOOD CELL COUNT DECREASED [None]
